FAERS Safety Report 5772019-X (Version None)
Quarter: 2008Q2

REPORT INFORMATION
  Report Type: 
  Country: None (occurrence: None)
  Receive Date: 20080613
  Receipt Date: 20080609
  Transmission Date: 20081010
  Serious: Yes (Life-Threatening)
  Sender: FDA-Public Use
  Company Number: PK-AVENTIS-200815428GDDC

PATIENT
  Age: 38 Year
  Sex: Female
  Weight: 70 kg

DRUGS (1)
  1. FLAGYL [Suspect]
     Indication: CAESAREAN SECTION
     Route: 042
     Dates: start: 20080608, end: 20080608

REACTIONS (2)
  - BRADYCARDIA [None]
  - NO THERAPEUTIC RESPONSE [None]
